FAERS Safety Report 7021221-8 (Version None)
Quarter: 2010Q3

REPORT INFORMATION
  Report Type: 
  Country: None (occurrence: None)
  Receive Date: 20100929
  Receipt Date: 20100927
  Transmission Date: 20110219
  Serious: Yes (Death)
  Sender: FDA-Public Use
  Company Number: US-GILEAD-2010-0031801

PATIENT
  Sex: Female
  Weight: 62.652 kg

DRUGS (20)
  1. LETAIRIS [Suspect]
     Indication: PULMONARY ARTERIAL HYPERTENSION
     Route: 048
     Dates: start: 20100609
  2. FUROSEMIDE [Concomitant]
  3. ASPIRIN [Concomitant]
  4. PULMICORT [Concomitant]
  5. XOPENEX [Concomitant]
  6. CARAFATE [Concomitant]
  7. BUMETANIDE [Concomitant]
  8. KLOR-CON [Concomitant]
  9. ALPRAZOLAM [Concomitant]
  10. PREDNISONE [Concomitant]
  11. CLARITIN [Concomitant]
  12. AFRIN [Concomitant]
  13. ZANTAC [Concomitant]
  14. MAXI-VITE [Concomitant]
  15. HYDROCORTISONE [Concomitant]
  16. BROVAN [Concomitant]
  17. NEXIUM [Concomitant]
  18. MAXIVISION [Concomitant]
  19. NASONEX [Concomitant]
  20. SERTRALINE HYDROCHLORIDE [Concomitant]

REACTIONS (2)
  - CHRONIC OBSTRUCTIVE PULMONARY DISEASE [None]
  - LUNG NEOPLASM MALIGNANT [None]
